FAERS Safety Report 9580634 (Version 2)
Quarter: 2014Q3

REPORT INFORMATION
  Report Type: Spontaneous
  Country: US (occurrence: None)
  Receive Date: 20130916
  Receipt Date: 20140915
  Transmission Date: 20150326
  Serious: Yes (Other)
  Sender: FDA-Public Use
  Company Number: JPI-P-033500

PATIENT
  Age: 16 Year
  Sex: Female
  Weight: 57.7 kg

DRUGS (4)
  1. IMIPRAMINE [Suspect]
     Active Substance: IMIPRAMINE
     Indication: NARCOLEPSY
     Route: 048
     Dates: start: 201301
  2. XYREM [Suspect]
     Active Substance: SODIUM OXYBATE
     Indication: CATAPLEXY
     Route: 048
     Dates: start: 20130307
  3. IMIPRAMINE [Suspect]
     Active Substance: IMIPRAMINE
     Indication: CATAPLEXY
     Route: 048
     Dates: start: 201301
  4. XYREM [Suspect]
     Active Substance: SODIUM OXYBATE
     Indication: NARCOLEPSY
     Route: 048
     Dates: start: 20130307

REACTIONS (3)
  - Dyspnoea [None]
  - Apnoea [None]
  - Hypopnoea [None]

NARRATIVE: CASE EVENT DATE: 20130627
